FAERS Safety Report 8093674-8 (Version None)
Quarter: 2012Q1

REPORT INFORMATION
  Report Type: 
  Country: None (occurrence: None)
  Receive Date: 20120129
  Receipt Date: 20111026
  Transmission Date: 20120608
  Serious: No
  Sender: FDA-Public Use
  Company Number: US-ABBOTT-11P-163-0868570-00

PATIENT
  Age: 57 Year
  Sex: Female

DRUGS (1)
  1. HUMIRA [Suspect]
     Indication: PSORIATIC ARTHROPATHY

REACTIONS (6)
  - NEUTROPHIL COUNT INCREASED [None]
  - LYMPHOCYTE COUNT [None]
  - ONYCHOMYCOSIS [None]
  - INFLAMMATION [None]
  - FATIGUE [None]
  - PSORIASIS [None]
